FAERS Safety Report 12656335 (Version 1)
Quarter: 2016Q3

REPORT INFORMATION
  Report Type: Spontaneous
  Country: US (occurrence: US)
  Receive Date: 20160816
  Receipt Date: 20160816
  Transmission Date: 20161109
  Serious: No
  Sender: FDA-Public Use
  Company Number: US-PERRIGO-15US008315

PATIENT
  Age: 41 Year
  Sex: Female
  Weight: 83.9 kg

DRUGS (5)
  1. LORATADINE. [Suspect]
     Active Substance: LORATADINE
     Indication: SEASONAL ALLERGY
     Dosage: 10 MG, QD
     Route: 048
     Dates: start: 20150610, end: 20150810
  2. ATORVASTATIN [Suspect]
     Active Substance: ATORVASTATIN
     Indication: ACCIDENTAL EXPOSURE TO PRODUCT
     Dosage: 1 TABLET, DAILY
     Route: 048
     Dates: start: 20150610, end: 20150810
  3. LORATADINE. [Suspect]
     Active Substance: LORATADINE
     Indication: SNEEZING
  4. LORATADINE. [Suspect]
     Active Substance: LORATADINE
     Indication: LACRIMATION INCREASED
  5. CETIRIZINE HYDROCHLORIDE. [Suspect]
     Active Substance: CETIRIZINE HYDROCHLORIDE
     Indication: ACCIDENTAL EXPOSURE TO PRODUCT
     Dosage: 10 MG, QD
     Route: 048
     Dates: start: 20150610, end: 20150810

REACTIONS (2)
  - Accidental exposure to product [Recovered/Resolved]
  - Migraine [Unknown]

NARRATIVE: CASE EVENT DATE: 20150610
